FAERS Safety Report 9494228 (Version 1)
Quarter: 2013Q3

REPORT INFORMATION
  Report Type: Spontaneous
  Country: US (occurrence: None)
  Receive Date: 20130828
  Receipt Date: 20130828
  Transmission Date: 20140515
  Serious: Yes (Other)
  Sender: FDA-Public Use
  Company Number: AUR-APL-2013-06964

PATIENT
  Age: 37 Year
  Sex: Female

DRUGS (2)
  1. SUMATRIPTAN [Suspect]
     Indication: MIGRAINE
  2. NAPROXEN [Suspect]
     Indication: MIGRAINE

REACTIONS (2)
  - Colitis ischaemic [None]
  - Drug interaction [None]
